FAERS Safety Report 20675080 (Version 2)
Quarter: 2022Q4

REPORT INFORMATION
  Report Type: Spontaneous
  Country: FR (occurrence: FR)
  Receive Date: 20220405
  Receipt Date: 20221123
  Transmission Date: 20230113
  Serious: Yes (Other)
  Sender: FDA-Public Use
  Company Number: FR-ALLERGAN-2210984US

PATIENT
  Sex: Female

DRUGS (15)
  1. MILNACIPRAN [Suspect]
     Active Substance: MILNACIPRAN
     Indication: Fibromyalgia
     Dosage: UNK
     Route: 048
  2. METEOSPASMYL [Concomitant]
  3. NEBIVOLOL HYDROCHLORIDE [Concomitant]
     Active Substance: NEBIVOLOL HYDROCHLORIDE
  4. ZOLPIDEM TARTRATE [Concomitant]
     Active Substance: ZOLPIDEM TARTRATE
  5. POVIDONE [Concomitant]
     Active Substance: POVIDONE
  6. BACLOFEN [Concomitant]
     Active Substance: BACLOFEN
  7. RIVOTRIL [Concomitant]
     Active Substance: CLONAZEPAM
  8. BROMAZEPAM [Concomitant]
     Active Substance: BROMAZEPAM
  9. MOVICOL [Concomitant]
     Active Substance: POLYETHYLENE GLYCOL 3350\POTASSIUM CHLORIDE\SODIUM BICARBONATE\SODIUM CHLORIDE
  10. VALIUM [Concomitant]
     Active Substance: DIAZEPAM
  11. LEVOTHYROXINE [Concomitant]
     Active Substance: LEVOTHYROXINE
  12. LEVOCETIRIZINE DIHYDROCHLORIDE [Concomitant]
     Active Substance: LEVOCETIRIZINE DIHYDROCHLORIDE
  13. ANETHOLTRITHION [Concomitant]
     Active Substance: ANETHOLTRITHION
  14. IMIJECT [SUMATRIPTAN] [Concomitant]
  15. PRAZEPAM [Concomitant]
     Active Substance: PRAZEPAM

REACTIONS (8)
  - Intentional self-injury [Recovered/Resolved]
  - Onychophagia [Recovered/Resolved]
  - Product use in unapproved indication [Unknown]
  - Sleep disorder [Recovered/Resolved]
  - Vision blurred [Recovered/Resolved]
  - Fatigue [Recovered/Resolved]
  - Anxiety [Recovered/Resolved]
  - Product substitution issue [Unknown]
